FAERS Safety Report 12587010 (Version 1)
Quarter: 2016Q3

REPORT INFORMATION
  Report Type: Report from Study
  Country: US (occurrence: US)
  Receive Date: 20160725
  Receipt Date: 20160725
  Transmission Date: 20161109
  Serious: Yes (Death, Other)
  Sender: FDA-Public Use
  Company Number: US-ROCHE-1799818

PATIENT
  Age: 59 Year
  Sex: Male
  Weight: 110.9 kg

DRUGS (8)
  1. VISMODEGIB [Suspect]
     Active Substance: VISMODEGIB
     Route: 048
     Dates: start: 20111010, end: 20111010
  2. GEMCITABINE HYDROCHLORIDE. [Suspect]
     Active Substance: GEMCITABINE HYDROCHLORIDE
     Indication: PANCREATIC CARCINOMA
     Dosage: OVER 30 MINUTES ON DAYS 1, 8, AND 15, COURSE 1, ASSIGNED CODE: TAC1
     Route: 042
     Dates: start: 20110325
  3. GEMCITABINE HYDROCHLORIDE. [Suspect]
     Active Substance: GEMCITABINE HYDROCHLORIDE
     Dosage: OVER 30 MINUTES ON DAYS 1, 8, AND 15, COURSE 1, ASSIGNED CODE: TAC1
     Route: 042
     Dates: start: 20111010, end: 20111010
  4. VISMODEGIB [Suspect]
     Active Substance: VISMODEGIB
     Indication: PANCREATIC CARCINOMA
     Route: 048
     Dates: start: 20110815
  5. GEMCITABINE HYDROCHLORIDE. [Suspect]
     Active Substance: GEMCITABINE HYDROCHLORIDE
     Dosage: OVER 30 MINUTES ON DAYS 1, 8, AND 15, COURSE 1, ASSIGNED CODE: TAC1
     Route: 042
     Dates: start: 20110422
  6. VISMODEGIB [Suspect]
     Active Substance: VISMODEGIB
     Route: 048
     Dates: start: 20110912
  7. GEMCITABINE HYDROCHLORIDE. [Suspect]
     Active Substance: GEMCITABINE HYDROCHLORIDE
     Dosage: OVER 30 MINUTES ON DAYS 1, 8, AND 15, COURSE 1, ASSIGNED CODE: TAC1
     Route: 042
     Dates: start: 20110815
  8. GEMCITABINE HYDROCHLORIDE. [Suspect]
     Active Substance: GEMCITABINE HYDROCHLORIDE
     Dosage: OVER 30 MINUTES ON DAYS 1, 8, AND 15, COURSE 1, ASSIGNED CODE: TAC1
     Route: 042
     Dates: start: 20110912

REACTIONS (5)
  - Febrile neutropenia [Unknown]
  - Death [Fatal]
  - Platelet count decreased [Unknown]
  - White blood cell count decreased [Unknown]
  - Neutrophil count decreased [Unknown]

NARRATIVE: CASE EVENT DATE: 20120507
